FAERS Safety Report 10955475 (Version 3)
Quarter: 2015Q2

REPORT INFORMATION
  Report Type: Spontaneous
  Country: FR (occurrence: FR)
  Receive Date: 20150326
  Receipt Date: 20150512
  Transmission Date: 20150821
  Serious: Yes (Hospitalization, Disabling, Other)
  Sender: FDA-Public Use
  Company Number: FR-ABBVIE-15K-056-1365242-00

PATIENT
  Age: 67 Year
  Sex: Male

DRUGS (1)
  1. HUMIRA [Suspect]
     Active Substance: ADALIMUMAB
     Indication: PSORIASIS
     Route: 058
     Dates: start: 2012, end: 201502

REACTIONS (3)
  - Ischaemic stroke [Unknown]
  - Cerebral artery occlusion [Unknown]
  - Atrial flutter [Unknown]

NARRATIVE: CASE EVENT DATE: 20150205
